FAERS Safety Report 6678425-3 (Version None)
Quarter: 2010Q2

REPORT INFORMATION
  Report Type: 
  Country: None (occurrence: None)
  Receive Date: 20100413
  Receipt Date: 20100405
  Transmission Date: 20101027
  Serious: No
  Sender: FDA-Public Use
  Company Number: US-BIOGENIDEC-2010BI011451

PATIENT
  Age: 65 Year
  Sex: Male

DRUGS (1)
  1. TYSABRI [Suspect]
     Indication: MULTIPLE SCLEROSIS
     Route: 042
     Dates: start: 20080611

REACTIONS (11)
  - BLINDNESS [None]
  - BRUXISM [None]
  - DRY MOUTH [None]
  - FATIGUE [None]
  - MALOCCLUSION [None]
  - MOUTH INJURY [None]
  - MUSCLE STRAIN [None]
  - OEDEMA PERIPHERAL [None]
  - PERIPHERAL SENSORY NEUROPATHY [None]
  - TESTICULAR PAIN [None]
  - TESTICULAR SWELLING [None]
